FAERS Safety Report 7726536-3 (Version None)
Quarter: 2011Q3

REPORT INFORMATION
  Report Type: 
  Country: None (occurrence: None)
  Receive Date: 20110902
  Receipt Date: 20110823
  Transmission Date: 20111222
  Serious: Yes (Other)
  Sender: FDA-Public Use
  Company Number: PHHY2011CL75764

PATIENT
  Sex: Male

DRUGS (2)
  1. GLEEVEC [Suspect]
     Dosage: 800 MG, UNK
  2. GLEEVEC [Suspect]
     Dosage: 400 MG, UNK

REACTIONS (3)
  - METASTASES TO PERITONEUM [None]
  - DRUG RESISTANCE [None]
  - METASTASES TO LIVER [None]
